FAERS Safety Report 5847178-0 (Version None)
Quarter: 2008Q3

REPORT INFORMATION
  Report Type: 
  Country: None (occurrence: None)
  Receive Date: 20080815
  Receipt Date: 20080811
  Transmission Date: 20090109
  Serious: Yes (Other)
  Sender: FDA-Public Use
  Company Number: PHHY2008AT17662

PATIENT
  Sex: Female

DRUGS (1)
  1. TRASICOR [Suspect]

REACTIONS (2)
  - CATARACT OPERATION [None]
  - DRY EYE [None]
